FAERS Safety Report 7417014-X (Version None)
Quarter: 2011Q2

REPORT INFORMATION
  Report Type: 
  Country: None (occurrence: None)
  Receive Date: 20110406
  Receipt Date: 20110328
  Transmission Date: 20111010
  Serious: Yes (Hospitalization)
  Sender: FDA-Public Use
  Company Number: 1000019682

PATIENT
  Age: 76 Year
  Sex: Female

DRUGS (1)
  1. NEBIVOLOL HCL [Suspect]
     Dosage: 2.5 MG (2.5 MG,1 IN 1 D),ORAL
     Route: 048
     Dates: start: 20080101, end: 20110212

REACTIONS (16)
  - LUPUS-LIKE SYNDROME [None]
  - IMMUNOGLOBULINS INCREASED [None]
  - OEDEMA PERIPHERAL [None]
  - ANTI-THYROID ANTIBODY POSITIVE [None]
  - COMPLEMENT FACTOR C4 DECREASED [None]
  - RAYNAUD'S PHENOMENON [None]
  - SICCA SYNDROME [None]
  - DECREASED APPETITE [None]
  - C-REACTIVE PROTEIN INCREASED [None]
  - BLOOD ALBUMIN DECREASED [None]
  - TRANSFERRIN DECREASED [None]
  - LYMPHOCYTE COUNT DECREASED [None]
  - DYSAESTHESIA [None]
  - ANTINUCLEAR ANTIBODY POSITIVE [None]
  - PYREXIA [None]
  - TENOSYNOVITIS [None]
